FAERS Safety Report 16413001 (Version 1)
Quarter: 2019Q2

REPORT INFORMATION
  Report Type: Report from Study
  Country: None (occurrence: US)
  Receive Date: 20190611
  Receipt Date: 20190611
  Transmission Date: 20190711
  Serious: Yes (Other)
  Sender: FDA-Public Use
  Company Number: US-ABBVIE-19K-163-2807970-00

PATIENT
  Sex: Female

DRUGS (1)
  1. VENCLEXTA [Suspect]
     Active Substance: VENETOCLAX
     Indication: LYMPHOCYTIC LEUKAEMIA
     Route: 048
     Dates: start: 201904

REACTIONS (19)
  - Mean platelet volume decreased [Unknown]
  - Eosinophil count decreased [Unknown]
  - Neutrophil count increased [Unknown]
  - Neutropenia [Unknown]
  - Glomerular filtration rate decreased [Unknown]
  - Blood urea increased [Unknown]
  - Protein total decreased [Unknown]
  - Platelet count decreased [Unknown]
  - Anaemia [Unknown]
  - Iron binding capacity total decreased [Unknown]
  - Monocyte count decreased [Unknown]
  - Myelodysplastic syndrome [Unknown]
  - Microcytosis [Unknown]
  - Red cell distribution width increased [Unknown]
  - Haematocrit decreased [Unknown]
  - Blood iron decreased [Unknown]
  - Blood glucose increased [Unknown]
  - Blood creatinine increased [Unknown]
  - Basophil count increased [Unknown]

NARRATIVE: CASE EVENT DATE: 2019
